FAERS Safety Report 14408701 (Version 1)
Quarter: 2018Q1

REPORT INFORMATION
  Report Type: Spontaneous
  Country: ES (occurrence: ES)
  Receive Date: 20180119
  Receipt Date: 20180119
  Transmission Date: 20180509
  Serious: Yes (Hospitalization)
  Sender: FDA-Public Use
  Company Number: ES-SUN PHARMACEUTICAL INDUSTRIES LTD-2018R1-160439

PATIENT
  Age: 70 Year
  Sex: Female

DRUGS (6)
  1. OMEPRAZOL 20 [Concomitant]
     Active Substance: OMEPRAZOLE
     Dosage: UNK
     Route: 048
     Dates: start: 20150103
  2. ADIRO 100 [Concomitant]
     Active Substance: ASPIRIN
     Dosage: UNK, QD
     Route: 048
     Dates: start: 20150103
  3. PRAVASTATINA ALTER 10 MG COMPRIMIDOS EFG, 28 COMPRIMIDOS [Concomitant]
     Dosage: UNK, QD
     Route: 048
     Dates: start: 20150103
  4. LOSARTAN/HIDROCLOROTIAZIDA RANBAXY 50/12.5MG COMPRIMIDOS EFG [Suspect]
     Active Substance: HYDROCHLOROTHIAZIDE\LOSARTAN
     Indication: PRODUCT USED FOR UNKNOWN INDICATION
     Dosage: 1 DF, DAILY
     Route: 048
     Dates: start: 20150103, end: 20170404
  5. METFORMINA ABEX 850 COMPRIMIDOS RECUBIERTOS CON PELICULA EFG ,50 COMP [Concomitant]
     Dosage: UNK, BID
     Route: 048
     Dates: start: 20150103
  6. REPAGLINIDA  1 [Concomitant]
     Dosage: UNK, QD
     Route: 048
     Dates: start: 20150103

REACTIONS (1)
  - Inappropriate antidiuretic hormone secretion [Recovered/Resolved]

NARRATIVE: CASE EVENT DATE: 20170404
